FAERS Safety Report 14962728 (Version 3)
Quarter: 2018Q2

REPORT INFORMATION
  Report Type: Spontaneous
  Country: JP (occurrence: JP)
  Receive Date: 20180601
  Receipt Date: 20180614
  Transmission Date: 20180711
  Serious: Yes (Death)
  Sender: FDA-Public Use
  Company Number: JP-OTSUKA-2018_014118

PATIENT
  Age: 33 Year
  Sex: Male

DRUGS (14)
  1. LONASEN [Suspect]
     Active Substance: BLONANSERIN
     Dosage: 12 MG, DAILY DOSE
     Route: 048
     Dates: end: 20180506
  2. LEVOMEPROMAZINE [Suspect]
     Active Substance: LEVOMEPROMAZINE
     Indication: PRODUCT USED FOR UNKNOWN INDICATION
     Dosage: 275 MG, DAILY DOSE
     Route: 048
     Dates: start: 20180521, end: 20180528
  3. NITRAZEPAM [Suspect]
     Active Substance: NITRAZEPAM
     Indication: PRODUCT USED FOR UNKNOWN INDICATION
     Dosage: 10 MG, DAILY DOSE
     Route: 048
  4. LEVOMEPROMAZINE [Suspect]
     Active Substance: LEVOMEPROMAZINE
     Dosage: 15 MG, DAILY DOSE
     Route: 048
     Dates: end: 20180506
  5. REXULTI [Suspect]
     Active Substance: BREXPIPRAZOLE
     Indication: SCHIZOPHRENIA
     Dosage: 1 MG, DAILY DOSE
     Route: 048
     Dates: start: 20180525, end: 20180528
  6. LEVOMEPROMAZINE [Suspect]
     Active Substance: LEVOMEPROMAZINE
     Dosage: 50 MG, DAILY DOSE
     Route: 048
     Dates: start: 20180507, end: 20180515
  7. HALOMONTH [Concomitant]
     Active Substance: HALOPERIDOL DECANOATE
     Dosage: 50 MG, UNK
     Route: 030
     Dates: start: 20180515
  8. HALOPERIDOL. [Concomitant]
     Active Substance: HALOPERIDOL
     Indication: PRODUCT USED FOR UNKNOWN INDICATION
     Dosage: 5 MG, BID
     Route: 042
     Dates: start: 20180511, end: 20180523
  9. HALOMONTH [Concomitant]
     Active Substance: HALOPERIDOL DECANOATE
     Indication: PRODUCT USED FOR UNKNOWN INDICATION
     Dosage: 50 MG, UNK
     Route: 030
     Dates: start: 20180417
  10. LEVOMEPROMAZINE [Suspect]
     Active Substance: LEVOMEPROMAZINE
     Dosage: 200 MG, DAILY DOSE
     Route: 048
     Dates: start: 20180516, end: 20180520
  11. HALOPERIDOL. [Concomitant]
     Active Substance: HALOPERIDOL
     Dosage: 5 MG, BID
     Route: 030
     Dates: start: 20180528
  12. LONASEN [Suspect]
     Active Substance: BLONANSERIN
     Indication: PRODUCT USED FOR UNKNOWN INDICATION
     Dosage: 16 MG, DAILY DOSE
     Route: 048
     Dates: start: 20180507, end: 20180528
  13. RISPERDAL [Suspect]
     Active Substance: RISPERIDONE
     Indication: PRODUCT USED FOR UNKNOWN INDICATION
     Dosage: 6 MG, DAILY DOSE
     Route: 048
     Dates: start: 20180410, end: 20180528
  14. HALOMONTH [Concomitant]
     Active Substance: HALOPERIDOL DECANOATE
     Dosage: 50 MG, UNK
     Route: 030
     Dates: start: 20180501

REACTIONS (1)
  - Arrhythmia [Fatal]

NARRATIVE: CASE EVENT DATE: 20180528
